FAERS Safety Report 8280932 (Version 3)
Quarter: 2012Q4

REPORT INFORMATION
  Report Type: 
  Country: JP (occurrence: JP)
  Receive Date: 20111208
  Receipt Date: 20120907
  Transmission Date: 20130627
  Serious: Yes (Other)
  Sender: FDA-Public Use
  Company Number: JP-JNJFOC-20111202294

PATIENT
  Age: 29 Year
  Sex: Male

DRUGS (9)
  1. PREZISTA [Suspect]
     Indication: HIV INFECTION
     Route: 048
  2. PREZISTA [Suspect]
     Indication: PROGRESSIVE MULTIFOCAL LEUKOENCEPHALOPATHY
     Route: 048
  3. TRUVADA [Suspect]
     Indication: HIV INFECTION
     Route: 048
  4. TRUVADA [Suspect]
     Indication: PROPHYLAXIS
     Route: 048
  5. NORVIR [Suspect]
     Indication: HIV INFECTION
     Route: 048
  6. NORVIR [Suspect]
     Indication: PROGRESSIVE MULTIFOCAL LEUKOENCEPHALOPATHY
     Route: 048
  7. PREDNISOLONE [Suspect]
     Indication: PROPHYLAXIS
     Route: 048
  8. PREDNISOLONE [Suspect]
     Indication: PROPHYLAXIS
     Route: 048
  9. METHYLPREDNISOLONE [Suspect]
     Indication: IMMUNE RECONSTITUTION SYNDROME
     Route: 065

REACTIONS (3)
  - Tongue paralysis [Recovered/Resolved]
  - Hypoaesthesia [Recovered/Resolved]
  - Muscular weakness [Recovered/Resolved]
